FAERS Safety Report 8911604 (Version 1)
Quarter: 2012Q4

REPORT INFORMATION
  Report Type: 
  Country: US (occurrence: US)
  Receive Date: 20121116
  Receipt Date: 20121116
  Transmission Date: 20130627
  Serious: Yes (Hospitalization)
  Sender: FDA-Public Use
  Company Number: US-BAYER-2012-117781

PATIENT
  Age: 29 Year
  Sex: Female
  Weight: 100 kg

DRUGS (5)
  1. YAZ [Suspect]
  2. AMBIEN [Concomitant]
     Dosage: Pre-admission
  3. LEXAPRO [Concomitant]
     Dosage: Pre-admission
  4. PROPOXYPHENE NAPSYLATE W/ACETAMINOPHENE [Concomitant]
     Dosage: Pre-admission
  5. LEVAQUIN [Concomitant]

REACTIONS (2)
  - Deep vein thrombosis [None]
  - Thrombophlebitis [None]
